FAERS Safety Report 7581113-2 (Version None)
Quarter: 2011Q2

REPORT INFORMATION
  Report Type: 
  Country: None (occurrence: None)
  Receive Date: 20110629
  Receipt Date: 20110623
  Transmission Date: 20111010
  Serious: Yes (Death, Hospitalization)
  Sender: FDA-Public Use
  Company Number: FR-BAXTER-2011BH020756

PATIENT
  Age: 55 Year
  Sex: Female

DRUGS (5)
  1. CIPROFLOXACIN [Concomitant]
     Indication: NASOPHARYNGITIS
     Route: 065
     Dates: start: 20110404
  2. FLUDARABINE PHOSPHATE [Suspect]
     Indication: CHRONIC LYMPHOCYTIC LEUKAEMIA
     Route: 048
     Dates: start: 20101109, end: 20110401
  3. RITUXAN [Suspect]
     Indication: CHRONIC LYMPHOCYTIC LEUKAEMIA
     Route: 042
     Dates: start: 20101108, end: 20110328
  4. CYCLOPHOSPHAMIDE [Suspect]
     Indication: CHRONIC LYMPHOCYTIC LEUKAEMIA
     Route: 048
     Dates: start: 20101109, end: 20110401
  5. CEPHALOSPORINS AND RELATED SUBSTANCES [Concomitant]
     Indication: NASOPHARYNGITIS
     Route: 065
     Dates: start: 20110404

REACTIONS (2)
  - PANCYTOPENIA [None]
  - CENTRAL NERVOUS SYSTEM LESION [None]
